FAERS Safety Report 7132214-4 (Version None)
Quarter: 2010Q4

REPORT INFORMATION
  Report Type: 
  Country: None (occurrence: None)
  Receive Date: 20101202
  Receipt Date: 20101123
  Transmission Date: 20110411
  Serious: Yes (Other)
  Sender: FDA-Public Use
  Company Number: ES-BRISTOL-MYERS SQUIBB COMPANY-15413941

PATIENT
  Age: 70 Year
  Sex: Male
  Weight: 70 kg

DRUGS (4)
  1. CETUXIMAB [Suspect]
     Indication: HEAD AND NECK CANCER
     Dosage: LAST AND RECENT DOSE:16NOV10 STREG:5MG/ML INTERRUPTED ON 22NOV10
     Route: 042
     Dates: start: 20100830, end: 20101116
  2. CISPLATIN [Suspect]
     Indication: HEAD AND NECK CANCER
     Dosage: LAST AND RECENT DOSE:25OCT10 INTERRUPTED ON 22NOV10
     Route: 042
     Dates: start: 20100830, end: 20101025
  3. CILENGITIDE [Suspect]
     Indication: HEAD AND NECK CANCER
     Dosage: LAST AND RECENT DOSE:16NOV10 INTERRUPTED ON 22NOV10
     Route: 042
     Dates: start: 20100830, end: 20101116
  4. FLUOROURACIL [Suspect]
     Indication: HEAD AND NECK CANCER
     Dosage: LAST AND RECENT DOSE:25OCT10 CONTINOUS INF FROM DAY 1 TO DAY 4 OF CYCLE INTERRUPTED ON 22NOV10
     Route: 042
     Dates: start: 20100830, end: 20101025

REACTIONS (1)
  - RETINAL ARTERY OCCLUSION [None]
